FAERS Safety Report 13275561 (Version 1)
Quarter: 2017Q1

REPORT INFORMATION
  Report Type: Spontaneous
  Country: US (occurrence: US)
  Receive Date: 20170228
  Receipt Date: 20170228
  Transmission Date: 20170428
  Serious: No
  Sender: FDA-Public Use
  Company Number: US-TEVA-743318ACC

PATIENT
  Age: 57 Year
  Sex: Female

DRUGS (42)
  1. MULTIVITAMIN [Concomitant]
     Active Substance: VITAMINS
  2. VITAMIN B COMPLEX [Concomitant]
     Active Substance: CYANOCOBALAMIN\DEXPANTHENOL\NIACINAMIDE\PYRIDOXINE HYDROCHLORIDE\RIBOFLAVIN 5^-PHOSPHATE SODIUM\THIAMINE HYDROCHLORIDE\VITAMIN B COMPLEX
  3. METHYLPHENID [Concomitant]
     Active Substance: METHYLPHENIDATE
  4. VOLTAREN [Concomitant]
     Active Substance: DICLOFENAC SODIUM
  5. FLUTICASONE SPR [Concomitant]
  6. VIGAMOX [Concomitant]
     Active Substance: MOXIFLOXACIN HYDROCHLORIDE
  7. VITAMIN D [Concomitant]
     Active Substance: CHOLECALCIFEROL
  8. CLONAZEPAM. [Concomitant]
     Active Substance: CLONAZEPAM
  9. ALENDRONATE [Concomitant]
     Active Substance: ALENDRONATE SODIUM
  10. ESOMEPRA MAG [Concomitant]
  11. NIRAVAM [Concomitant]
     Active Substance: ALPRAZOLAM
  12. VITAMIN D [Concomitant]
     Active Substance: CHOLECALCIFEROL
  13. ORPHENADRINE ER [Concomitant]
  14. NEXIUM [Concomitant]
     Active Substance: ESOMEPRAZOLE MAGNESIUM
  15. TOPAMAX [Concomitant]
     Active Substance: TOPIRAMATE
  16. CARAFATE SUS 1GM/10ML [Concomitant]
  17. CALCIUM [Concomitant]
     Active Substance: CALCIUM
  18. KAPIDEX DR [Concomitant]
  19. VENLAFAXINE ER [Concomitant]
     Active Substance: VENLAFAXINE HYDROCHLORIDE
  20. NEXIUM [Concomitant]
     Active Substance: ESOMEPRAZOLE MAGNESIUM
  21. LEVOTHYROXINE. [Concomitant]
     Active Substance: LEVOTHYROXINE
  22. LAMISIL [Concomitant]
     Active Substance: TERBINAFINE HYDROCHLORIDE
  23. GABAPENTIN. [Concomitant]
     Active Substance: GABAPENTIN
  24. ESTRACE VAG [Concomitant]
  25. VENLAFAXINE ER [Concomitant]
     Active Substance: VENLAFAXINE HYDROCHLORIDE
  26. ALPRAZOLAM OD [Concomitant]
  27. TOPIRAMATE. [Concomitant]
     Active Substance: TOPIRAMATE
  28. ONDANSETRON [Concomitant]
     Active Substance: ONDANSETRON
  29. LIPITOR [Concomitant]
     Active Substance: ATORVASTATIN CALCIUM
  30. VITAMIN B-12 SUB [Concomitant]
  31. PREVACID [Concomitant]
     Active Substance: LANSOPRAZOLE
  32. AMOXI CLAV [Concomitant]
     Active Substance: AMOXICILLIN\CLAVULANATE POTASSIUM
  33. COPAXONE [Suspect]
     Active Substance: GLATIRAMER ACETATE
     Indication: MULTIPLE SCLEROSIS
     Route: 058
  34. LOTEMAX [Concomitant]
     Active Substance: LOTEPREDNOL ETABONATE
  35. TRAMADOL HCL [Concomitant]
     Active Substance: TRAMADOL HYDROCHLORIDE
  36. SYNTHROID [Concomitant]
     Active Substance: LEVOTHYROXINE SODIUM
  37. VITAMIN B COMPLEX [Concomitant]
     Active Substance: CYANOCOBALAMIN\DEXPANTHENOL\NIACINAMIDE\PYRIDOXINE HYDROCHLORIDE\RIBOFLAVIN 5^-PHOSPHATE SODIUM\THIAMINE HYDROCHLORIDE\VITAMIN B COMPLEX
  38. EFFEXOR XR [Concomitant]
     Active Substance: VENLAFAXINE HYDROCHLORIDE
  39. DEXILANT DR [Concomitant]
  40. HYDROCO/APAP 5-500MG [Concomitant]
  41. SUCRALFATE SUS 1GM/10ML [Concomitant]
  42. CALCIUM CIT/ TAB VIT D [Concomitant]

REACTIONS (3)
  - Injection site pain [Recovered/Resolved]
  - Injection site erythema [Recovered/Resolved]
  - Injection site mass [Recovered/Resolved]

NARRATIVE: CASE EVENT DATE: 201601
